FAERS Safety Report 5525863-8 (Version None)
Quarter: 2007Q4

REPORT INFORMATION
  Report Type: 
  Country: None (occurrence: None)
  Receive Date: 20071126
  Receipt Date: 20071117
  Transmission Date: 20080405
  Serious: Yes (Hospitalization)
  Sender: FDA-Public Use
  Company Number: FR-AVENTIS-200715483EU

PATIENT
  Age: 80 Year
  Sex: Male

DRUGS (5)
  1. FLUDEX                             /00340101/ [Suspect]
     Indication: HYPERTENSION
     Dosage: DOSE: 1 DF
     Route: 048
     Dates: end: 20070927
  2. PRAXILENE [Suspect]
     Indication: CEREBROVASCULAR ACCIDENT
     Dosage: DOSE: 3 DF
     Route: 048
     Dates: end: 20070927
  3. RAMIPRIL [Concomitant]
  4. EFFERALGAN                         /00020001/ [Concomitant]
  5. ZAMUDOL [Concomitant]

REACTIONS (2)
  - DUODENITIS [None]
  - ELECTROLYTE IMBALANCE [None]
